FAERS Safety Report 26044149 (Version 2)
Quarter: 2025Q4

REPORT INFORMATION
  Report Type: Spontaneous
  Country: TW (occurrence: TW)
  Receive Date: 20251114
  Receipt Date: 20251125
  Transmission Date: 20260118
  Serious: Yes (Death)
  Sender: ROCHE
  Company Number: TW-ROCHE-10000432344

PATIENT
  Age: 84 Year
  Sex: Female
  Weight: 45.5 kg

DRUGS (10)
  1. PERJETA [Suspect]
     Active Substance: PERTUZUMAB
     Indication: Breast cancer
     Route: 042
     Dates: start: 20250611, end: 20251015
  2. HERCEPTIN [Suspect]
     Active Substance: TRASTUZUMAB
     Indication: Breast cancer
     Dosage: CONTENT: 440 MG
     Route: 042
     Dates: start: 20250611, end: 20251015
  3. TAGRISSO [Suspect]
     Active Substance: OSIMERTINIB
     Indication: Non-small cell lung cancer
     Dosage: CONTENT: 95.4 MG
     Route: 048
     Dates: start: 20200414, end: 20251027
  4. DOCETAXEL [Suspect]
     Active Substance: DOCETAXEL
     Indication: Breast cancer
     Route: 042
     Dates: start: 20250611, end: 20251015
  5. NEWZYME TABLETS^S TANDA RD [Concomitant]
     Dosage: CONTENT: 10 MG/30 MG/5 MG
     Route: 048
     Dates: start: 20251020, end: 20251027
  6. Famotidine F.C. Tablets 20mg ^CYH [Concomitant]
     Indication: Gastrointestinal ulcer
     Dosage: CONTENT: 20 MG
     Route: 048
     Dates: start: 20251020, end: 20251102
  7. SMECTA, POWDER FOR ORAL SUSPENSION [Concomitant]
     Dosage: DOSE: 1.0 PK, CONTENT: 3 G/L
     Route: 048
     Dates: start: 20251013, end: 20251027
  8. IMOLEX CAPSULES ^SINPHAR ^(LOPERAMIDE) [Concomitant]
     Dosage: CONTENT: 2 MG
     Route: 048
     Dates: start: 20251013, end: 20251027
  9. MEGEST ORAL SUSPENSION 40MG/ML [Concomitant]
     Dosage: CONTENT: 40 MG
     Route: 048
     Dates: start: 20251013, end: 20251027
  10. ICHDERM CREAM 50MG/GM ^M.S.^(DOXEPIN) [Concomitant]
     Dosage: CONTENT: 50 MG
     Route: 061
     Dates: start: 20251013, end: 20251102

REACTIONS (3)
  - Pneumonia [Fatal]
  - Respiratory failure [Fatal]
  - Interstitial lung disease [Fatal]

NARRATIVE: CASE EVENT DATE: 20251028
